FAERS Safety Report 19415852 (Version 2)
Quarter: 2021Q2

REPORT INFORMATION
  Report Type: Spontaneous
  Country: US (occurrence: US)
  Receive Date: 20210614
  Receipt Date: 20210615
  Transmission Date: 20210717
  Serious: Yes (Other)
  Sender: FDA-Public Use
  Company Number: US-PFIZER INC-2020462155

PATIENT
  Age: 34 Year
  Sex: Female
  Weight: 122.47 kg

DRUGS (3)
  1. PRISTIQ EXTENDED?RELEASE [Suspect]
     Active Substance: DESVENLAFAXINE SUCCINATE
     Dosage: 125 MG (TAKING BOTH THE PRISTIQ 25 AND PRISTIQ 100MG FOR A TOTAL DOSAGE OF 125MG)
  2. PRISTIQ EXTENDED?RELEASE [Suspect]
     Active Substance: DESVENLAFAXINE SUCCINATE
     Indication: GENERALISED ANXIETY DISORDER
     Dosage: 125 MG, 1X/DAY (125 MG DOSE BY MOUTH, ONCE A DAY)
     Route: 048
     Dates: start: 2015
  3. PRISTIQ EXTENDED?RELEASE [Suspect]
     Active Substance: DESVENLAFAXINE SUCCINATE
     Indication: MAJOR DEPRESSION
     Dosage: 125 MG, DAILY(ONE TABLET DAILY BY MOUTH IN THE MORNING)
     Route: 048
     Dates: start: 201902

REACTIONS (9)
  - Illness [Unknown]
  - Somnolence [Not Recovered/Not Resolved]
  - Loss of consciousness [Recovering/Resolving]
  - Withdrawal syndrome [Unknown]
  - Intentional product misuse [Recovered/Resolved]
  - Decreased appetite [Recovering/Resolving]
  - Confusional state [Not Recovered/Not Resolved]
  - Loss of personal independence in daily activities [Unknown]
  - Product prescribing error [Unknown]

NARRATIVE: CASE EVENT DATE: 20210601
